FAERS Safety Report 7575810-2 (Version None)
Quarter: 2011Q2

REPORT INFORMATION
  Report Type: 
  Country: None (occurrence: None)
  Receive Date: 20110628
  Receipt Date: 20110617
  Transmission Date: 20111010
  Serious: No
  Sender: FDA-Public Use
  Company Number: US-BIOGENIDEC-2011BI022461

PATIENT
  Age: 49 Year
  Sex: Female

DRUGS (1)
  1. TYSABRI [Suspect]
     Indication: MULTIPLE SCLEROSIS
     Route: 042
     Dates: start: 20110401

REACTIONS (6)
  - DEPRESSION [None]
  - HYPERSOMNIA [None]
  - DIPLOPIA [None]
  - CHROMATURIA [None]
  - VISUAL IMPAIRMENT [None]
  - URINARY TRACT INFECTION [None]
